FAERS Safety Report 10089187 (Version 1)
Quarter: 2014Q2

REPORT INFORMATION
  Report Type: Spontaneous
  Country: US (occurrence: US)
  Receive Date: 20140421
  Receipt Date: 20140421
  Transmission Date: 20141212
  Serious: No
  Sender: FDA-Public Use
  Company Number: US-009507513-1404USA010553

PATIENT
  Age: 61 Year
  Sex: Female

DRUGS (1)
  1. PEGINTRON [Suspect]
     Indication: HEPATITIS C
     Dosage: 150 MICROGRAM, QW
     Route: 058
     Dates: start: 2002

REACTIONS (3)
  - Tremor [Recovered/Resolved]
  - Tremor [Recovered/Resolved]
  - Drug dose omission [Recovered/Resolved]
